FAERS Safety Report 5548056-7 (Version None)
Quarter: 2007Q4

REPORT INFORMATION
  Report Type: 
  Country: None (occurrence: None)
  Receive Date: 20071211
  Receipt Date: 20070307
  Transmission Date: 20080405
  Serious: No
  Sender: FDA-Public Use
  Company Number: US-AMGEN-KDL211896

PATIENT
  Sex: Female

DRUGS (15)
  1. ENBREL [Suspect]
     Indication: RHEUMATOID ARTHRITIS
     Route: 058
     Dates: start: 20060814
  2. METHOTREXATE [Concomitant]
     Route: 048
     Dates: start: 20020101
  3. LISINOPRIL [Concomitant]
  4. FOLATE SODIUM [Concomitant]
  5. VICODIN [Concomitant]
  6. ASPIRIN [Concomitant]
  7. ASCORBIC ACID [Concomitant]
  8. NORVASC [Concomitant]
  9. LEVOTHYROXINE SODIUM [Concomitant]
  10. ULTRAM [Concomitant]
  11. FERROUS GLUCONATE [Concomitant]
  12. GLUCOSAMINE [Concomitant]
  13. NEXIUM [Concomitant]
  14. ARTHROTEC [Concomitant]
  15. FISH OIL [Concomitant]

REACTIONS (1)
  - VISUAL ACUITY REDUCED [None]
